FAERS Safety Report 5805940-4 (Version None)
Quarter: 2008Q3

REPORT INFORMATION
  Report Type: 
  Country: None (occurrence: None)
  Receive Date: 20080710
  Receipt Date: 20080710
  Transmission Date: 20090109
  Serious: Yes (Other)
  Sender: FDA-Public Use
  Company Number: A0736816A

PATIENT
  Age: 27 Year
  Sex: Female

DRUGS (3)
  1. ALLI [Suspect]
     Indication: WEIGHT LOSS DIET
     Route: 048
     Dates: start: 20080622, end: 20080703
  2. TOPAMAX [Concomitant]
  3. MULTI-VITAMIN [Concomitant]

REACTIONS (1)
  - CONVULSION [None]
